FAERS Safety Report 6956953-0 (Version None)
Quarter: 2010Q3

REPORT INFORMATION
  Report Type: 
  Country: None (occurrence: None)
  Receive Date: 20100827
  Receipt Date: 20100827
  Transmission Date: 20110219
  Serious: Yes (Hospitalization)
  Sender: FDA-Public Use
  Company Number: None

PATIENT
  Sex: Female
  Weight: 102.0593 kg

DRUGS (13)
  1. FENTANYL-75 [Suspect]
     Indication: ARTHRITIS
     Dosage: 1 Q 72H
     Dates: start: 20090701
  2. FOLIC ACID OTC [Concomitant]
  3. HYDROCODONE [Concomitant]
  4. TOPROL-XL [Concomitant]
  5. LASIX [Concomitant]
  6. TRAZODONE HCL [Concomitant]
  7. CYMBALTA [Concomitant]
  8. COLCHICINE [Concomitant]
  9. PROMETHAZINE [Concomitant]
  10. MICARDIS [Concomitant]
  11. KLOR-CON [Concomitant]
  12. PROBENECID [Concomitant]
  13. ETODOLAC [Concomitant]

REACTIONS (8)
  - AGITATION [None]
  - DRUG WITHDRAWAL SYNDROME [None]
  - HYPERAESTHESIA [None]
  - IRRITABILITY [None]
  - NAUSEA [None]
  - NO THERAPEUTIC RESPONSE [None]
  - PRODUCT SUBSTITUTION ISSUE [None]
  - VOMITING [None]
